FAERS Safety Report 5405834-2 (Version None)
Quarter: 2007Q3

REPORT INFORMATION
  Report Type: 
  Country: None (occurrence: None)
  Receive Date: 20070806
  Receipt Date: 20070802
  Transmission Date: 20080115
  Serious: Yes (Hospitalization, Other)
  Sender: FDA-Public Use
  Company Number: US-BRISTOL-MYERS SQUIBB COMPANY-13124730

PATIENT
  Age: 49 Year
  Sex: Male

DRUGS (7)
  1. LITHIUM CARBONATE [Suspect]
     Indication: BIPOLAR I DISORDER
     Route: 048
     Dates: start: 20050902, end: 20050922
  2. ABILIFY [Suspect]
     Route: 048
     Dates: start: 20050901
  3. BUSPAR [Suspect]
     Dates: start: 20051012
  4. KLONOPIN [Suspect]
     Route: 048
     Dates: start: 20050901
  5. DEPAKOTE [Suspect]
     Dates: start: 20051012
  6. SEROQUEL [Suspect]
     Dates: start: 20051012
  7. XANAX [Suspect]
     Dates: start: 20051012

REACTIONS (2)
  - ANXIETY [None]
  - SUICIDE ATTEMPT [None]
